FAERS Safety Report 9844702 (Version 2)
Quarter: 2015Q1

REPORT INFORMATION
  Report Type: Spontaneous
  Country: BR (occurrence: BR)
  Receive Date: 20140127
  Receipt Date: 20150206
  Transmission Date: 20150721
  Serious: Yes (Life-Threatening, Hospitalization, Other)
  Sender: FDA-Public Use
  Company Number: BR-BAYER-2014-008271

PATIENT
  Age: 31 Year
  Sex: Female
  Weight: 112 kg

DRUGS (2)
  1. SYNTHROID [Concomitant]
     Active Substance: LEVOTHYROXINE SODIUM
     Indication: HYPERTHYROIDISM
     Dosage: 1 DF, QD
     Route: 048
  2. YASMIN [Suspect]
     Active Substance: DROSPIRENONE\ETHINYL ESTRADIOL
     Indication: CONTRACEPTION
     Dosage: 1 DF, QD
     Route: 048
     Dates: start: 2011, end: 201311

REACTIONS (10)
  - Pre-eclampsia [Not Recovered/Not Resolved]
  - Abdominal pain upper [Not Recovered/Not Resolved]
  - Syncope [Recovered/Resolved]
  - Pregnancy on oral contraceptive [Recovered/Resolved]
  - Premature baby [Recovered/Resolved]
  - Diarrhoea [None]
  - Anaemia [None]
  - Haemorrhage in pregnancy [Recovering/Resolving]
  - Drug ineffective [None]
  - Vomiting [Not Recovered/Not Resolved]

NARRATIVE: CASE EVENT DATE: 2013
